FAERS Safety Report 6197263-1 (Version None)
Quarter: 2009Q2

REPORT INFORMATION
  Report Type: 
  Country: None (occurrence: None)
  Receive Date: 20090521
  Receipt Date: 20090514
  Transmission Date: 20091009
  Serious: Yes (Hospitalization, Other)
  Sender: FDA-Public Use
  Company Number: NZ-WYE-G03608909

PATIENT
  Age: 34 Year
  Sex: Male

DRUGS (2)
  1. ROBITUSSIN DX [Suspect]
     Dosage: 4 X 200ML OF THE PRODUCT PER WEEK
     Route: 048
  2. OPIOIDS [Suspect]

REACTIONS (5)
  - BLOOD BROMIDE INCREASED [None]
  - BRAIN INJURY [None]
  - DRUG ABUSE [None]
  - DRUG TOXICITY [None]
  - OVERDOSE [None]
